FAERS Safety Report 5990497-8 (Version None)
Quarter: 2008Q4

REPORT INFORMATION
  Report Type: 
  Country: None (occurrence: None)
  Receive Date: 20081209
  Receipt Date: 20081201
  Transmission Date: 20090506
  Serious: Yes (Hospitalization)
  Sender: FDA-Public Use
  Company Number: 2007SP016760

PATIENT
  Age: 48 Year
  Sex: Female
  Weight: 59.8748 kg

DRUGS (6)
  1. PEG-INTRON [Suspect]
     Indication: HEPATITIS C
     Dosage: QW
     Dates: start: 20070608
  2. RIBAVIRIN [Suspect]
     Indication: HEPATITIS C
     Dosage: 1000 MG;QD;PO, 800, MG;QD
     Route: 048
     Dates: start: 20070608
  3. PHENERGAN HCL [Suspect]
     Indication: BACK PAIN
     Dosage: ONCE
     Dates: start: 20070717, end: 20070717
  4. NUBAIN [Suspect]
     Indication: BACK PAIN
     Dosage: ONCE
     Dates: start: 20070717, end: 20070717
  5. NEXIUM [Concomitant]
  6. CELEXA [Concomitant]

REACTIONS (5)
  - BACK PAIN [None]
  - CELLULITIS [None]
  - RED BLOOD CELL COUNT DECREASED [None]
  - SWELLING FACE [None]
  - WHITE BLOOD CELL COUNT DECREASED [None]
